FAERS Safety Report 7117155-0 (Version None)
Quarter: 2010Q4

REPORT INFORMATION
  Report Type: 
  Country: None (occurrence: None)
  Receive Date: 20101122
  Receipt Date: 20101111
  Transmission Date: 20110411
  Serious: Yes (Hospitalization)
  Sender: FDA-Public Use
  Company Number: US-JNJFOC-20101104961

PATIENT
  Sex: Female
  Weight: 68.1 kg

DRUGS (22)
  1. INFLIXIMAB, RECOMBINANT [Suspect]
     Indication: CROHN'S DISEASE
     Route: 042
  2. INFLIXIMAB, RECOMBINANT [Suspect]
     Route: 042
  3. METHOTREXATE [Concomitant]
  4. MESALAMINE [Concomitant]
  5. PROBIOTICS [Concomitant]
  6. FLOVENT [Concomitant]
  7. SINGULAIR [Concomitant]
  8. LACTAID [Concomitant]
  9. ALBUTEROL [Concomitant]
  10. VIOKASE 16 [Concomitant]
  11. LUXIQ [Concomitant]
  12. PRILOSEC [Concomitant]
  13. PREDNISONE [Concomitant]
  14. MULTIPLE VITAMIN [Concomitant]
  15. FOLIC ACID [Concomitant]
  16. CALCIUM [Concomitant]
  17. VITRON C [Concomitant]
  18. LOVAZA [Concomitant]
  19. NU-IRON [Concomitant]
  20. CREON [Concomitant]
  21. VITAMIN D [Concomitant]
  22. ELAVIL [Concomitant]

REACTIONS (1)
  - ABDOMINAL PAIN [None]
